FAERS Safety Report 6834543-8 (Version None)
Quarter: 2010Q3

REPORT INFORMATION
  Report Type: 
  Country: None (occurrence: None)
  Receive Date: 20100712
  Receipt Date: 20070416
  Transmission Date: 20110219
  Serious: No
  Sender: FDA-Public Use
  Company Number: US-PFIZER INC-2007031052

PATIENT
  Sex: Female
  Weight: 109.1 kg

DRUGS (9)
  1. CHANTIX [Suspect]
     Indication: SMOKING CESSATION THERAPY
     Dates: start: 20070301
  2. LEXAPRO [Concomitant]
  3. GLUCOPHAGE [Concomitant]
  4. LISINOPRIL [Concomitant]
  5. RISPERDAL [Concomitant]
  6. GLYBURIDE [Concomitant]
  7. XOPENEX [Concomitant]
  8. DUONEB [Concomitant]
  9. ADVAIR DISKUS 100/50 [Concomitant]

REACTIONS (4)
  - ABDOMINAL PAIN [None]
  - CHEST DISCOMFORT [None]
  - CHEST PAIN [None]
  - MALAISE [None]
